FAERS Safety Report 19840814 (Version 7)
Quarter: 2022Q3

REPORT INFORMATION
  Report Type: Spontaneous
  Country: US (occurrence: US)
  Receive Date: 20210916
  Receipt Date: 20220927
  Transmission Date: 20221027
  Serious: No
  Sender: FDA-Public Use
  Company Number: US-PFIZER INC-2021548393

PATIENT
  Age: 69 Year
  Sex: Female

DRUGS (1)
  1. XELJANZ XR [Suspect]
     Active Substance: TOFACITINIB CITRATE
     Dosage: 11 MG
     Dates: end: 202208

REACTIONS (12)
  - Constipation [Unknown]
  - Fatigue [Recovered/Resolved]
  - Dyspnoea [Unknown]
  - Asthma [Unknown]
  - Hypertension [Unknown]
  - Back pain [Unknown]
  - Arthralgia [Unknown]
  - Bronchitis [Recovered/Resolved]
  - Fluid retention [Recovering/Resolving]
  - Dysgeusia [Recovering/Resolving]
  - Lung disorder [Unknown]
  - Wheezing [Unknown]

NARRATIVE: CASE EVENT DATE: 20220101
